FAERS Safety Report 5338234-4 (Version None)
Quarter: 2007Q2

REPORT INFORMATION
  Report Type: 
  Country: None (occurrence: None)
  Receive Date: 20070329
  Receipt Date: 20070226
  Transmission Date: 20071010
  Serious: Yes (Other)
  Sender: FDA-Public Use
  Company Number: US-JNJFOC-20061202182

PATIENT
  Age: 77 Year
  Sex: Female
  Weight: 80.2867 kg

DRUGS (2)
  1. ULTRAM ER [Suspect]
     Indication: DRUG USE FOR UNKNOWN INDICATION
     Dosage: ORAL
     Route: 048
  2. LEXAPRO (SSRI) UNSPECIFIED [Concomitant]

REACTIONS (1)
  - CONVULSION [None]
